FAERS Safety Report 8772332 (Version 2)
Quarter: 2012Q4

REPORT INFORMATION
  Report Type: 
  Country: GR (occurrence: GR)
  Receive Date: 20120905
  Receipt Date: 20120917
  Transmission Date: 20130627
  Serious: Yes (Death, Other)
  Sender: FDA-Public Use
  Company Number: PHHY2012GR076941

PATIENT

DRUGS (2)
  1. AFINITOR [Suspect]
     Dosage: 1 DF, QD
     Route: 048
     Dates: start: 20120724, end: 20120810
  2. AROMASIN [Concomitant]
     Route: 048
     Dates: start: 20120724, end: 20120816

REACTIONS (3)
  - Death [Fatal]
  - Epistaxis [Recovering/Resolving]
  - Fatigue [Not Recovered/Not Resolved]
